FAERS Safety Report 7632491 (Version 4)
Quarter: 2013Q2

REPORT INFORMATION
  Report Type: Spontaneous
  Country: US (occurrence: US)
  Receive Date: 20101018
  Receipt Date: 20130523
  Transmission Date: 20140414
  Serious: Yes (Disabling, Other)
  Sender: FDA-Public Use
  Company Number: US-BAYER-201037024NA

PATIENT
  Age: 29 Year
  Sex: Female
  Weight: 96 kg

DRUGS (10)
  1. YASMIN [Suspect]
     Indication: MENSTRUATION IRREGULAR
     Dosage: UNK UNK, UNK
     Route: 048
     Dates: start: 200508, end: 200607
  2. YASMIN [Suspect]
     Indication: MENORRHAGIA
  3. YAZ [Suspect]
     Dosage: UNK UNK, UNK
     Route: 048
     Dates: start: 200610, end: 20061224
  4. VYTORIN [Concomitant]
     Dosage: 10-40MG
  5. MERIDIA [Concomitant]
     Dosage: 15MG
  6. LEVOTHYROXIN [Concomitant]
     Dosage: 175MCG
  7. PHENTERMINE [Concomitant]
     Dosage: 37,5MG
  8. VICODIN [Concomitant]
     Indication: PAIN
     Dosage: UNK UNK, QD
  9. PHENERGAN [Concomitant]
     Indication: NAUSEA
     Dosage: 25 MG, PRN
  10. ADVIL [Concomitant]
     Indication: HEADACHE

REACTIONS (12)
  - Retinal vein occlusion [Unknown]
  - Blindness unilateral [Unknown]
  - Glaucoma [Unknown]
  - Eye disorder [Unknown]
  - Retinal detachment [None]
  - Pain [Unknown]
  - Cardiovascular disorder [Unknown]
  - Visual field defect [Unknown]
  - Altered visual depth perception [Unknown]
  - Muscle atrophy [Unknown]
  - Vision blurred [Unknown]
  - Off label use [None]
